FAERS Safety Report 9160116 (Version 3)
Quarter: 2013Q2

REPORT INFORMATION
  Report Type: Report from Study
  Country: DE (occurrence: DE)
  Receive Date: 20130313
  Receipt Date: 20130501
  Transmission Date: 20140414
  Serious: Yes (Hospitalization)
  Sender: FDA-Public Use
  Company Number: DE-ROCHE-1174050

PATIENT
  Age: 69 Year
  Sex: Male
  Weight: 87 kg

DRUGS (7)
  1. VISMODEGIB [Suspect]
     Indication: BASAL CELL CARCINOMA
     Dosage: DATE OF LAST DOSE PRIOR TO SAE: 19/FEB/2013
     Route: 048
     Dates: start: 20120622, end: 20130219
  2. VISMODEGIB [Suspect]
     Route: 048
     Dates: start: 20130222
  3. CORNEREGEL [Concomitant]
     Indication: CORNEAL TRANSPLANT
     Route: 065
     Dates: start: 200801
  4. CORNEREGEL [Concomitant]
     Dosage: 1 APPLICATION
     Route: 065
     Dates: start: 200801
  5. BATRAFEN [Concomitant]
     Indication: ONYCHOMYCOSIS
     Dosage: 1 APPLICATION
     Route: 065
     Dates: start: 20130327
  6. FUCIDIN [Concomitant]
     Indication: ERYTHEMA
     Dosage: 1 APPLICATION
     Route: 065
     Dates: start: 20130226
  7. OCTENISEPT [Concomitant]
     Indication: ERYTHEMA
     Dosage: 1 APPLICATION
     Route: 065
     Dates: start: 20130226

REACTIONS (2)
  - Incisional hernia [Recovered/Resolved]
  - Incisional hernia [Recovered/Resolved]
